FAERS Safety Report 4915946-5 (Version None)
Quarter: 2006Q1

REPORT INFORMATION
  Report Type: 
  Country: None (occurrence: None)
  Receive Date: 20060214
  Receipt Date: 20060130
  Transmission Date: 20060701
  Serious: No
  Sender: FDA-Public Use
  Company Number: C06-010

PATIENT
  Age: 31 Year
  Sex: Female

DRUGS (1)
  1. PHENTERMINE [Suspect]
     Indication: OBESITY
     Dosage: 1 CAPSULE A DAY
     Dates: start: 20060130, end: 20060131

REACTIONS (1)
  - DRUG EFFECT DECREASED [None]
